FAERS Safety Report 14818751 (Version 1)
Quarter: 2018Q2

REPORT INFORMATION
  Report Type: Spontaneous
  Country: US (occurrence: US)
  Receive Date: 20180417
  Receipt Date: 20180417
  Transmission Date: 20180711
  Serious: No
  Sender: FDA-Public Use
  Company Number: None

PATIENT
  Age: 72 Year
  Sex: Male

DRUGS (2)
  1. FELODIPINE. [Suspect]
     Active Substance: FELODIPINE
  2. XTANDI [Concomitant]
     Active Substance: ENZALUTAMIDE
     Dates: start: 20180130

REACTIONS (1)
  - Drug interaction [None]

NARRATIVE: CASE EVENT DATE: 20180417
